FAERS Safety Report 5720687-0 (Version None)
Quarter: 2008Q2

REPORT INFORMATION
  Report Type: 
  Country: None (occurrence: None)
  Receive Date: 20080429
  Receipt Date: 20080418
  Transmission Date: 20081010
  Serious: Yes (Hospitalization)
  Sender: FDA-Public Use
  Company Number: JP-JNJFOC-20080401882

PATIENT
  Sex: Female

DRUGS (21)
  1. RISPERDAL [Suspect]
     Indication: SCHIZOPHRENIA
     Route: 048
  2. ZOTEPINE [Suspect]
     Indication: DRUG USE FOR UNKNOWN INDICATION
     Route: 048
  3. RISPERDAL [Suspect]
     Route: 048
  4. RISPERDAL [Suspect]
     Route: 048
  5. NULOTAN [Concomitant]
  6. SPIRONOLACTONE [Concomitant]
  7. FERROUS SULFATE TAB [Concomitant]
  8. GASTER D [Concomitant]
  9. DORNALIN [Concomitant]
  10. CONIEL [Concomitant]
  11. TANATRIL [Concomitant]
  12. WARFARIN SODIUM [Concomitant]
  13. POTASSIUM GLUCONATE TAB [Concomitant]
  14. GASMOTIN [Concomitant]
  15. HERBAL MEDICINE [Concomitant]
  16. LEVOTHYROXINE SODIUM [Concomitant]
  17. ACETAMINOPHEN [Concomitant]
  18. SALICYLIC ACID [Concomitant]
  19. MAINTENANCE MEDIUM [Concomitant]
  20. MAINTENANCE MEDIUM [Concomitant]
  21. MAINTENANCE MEDIUM [Concomitant]

REACTIONS (5)
  - CARDIAC FAILURE [None]
  - PNEUMONIA [None]
  - PULMONARY THROMBOSIS [None]
  - PYREXIA [None]
  - URINARY TRACT INFECTION [None]
